FAERS Safety Report 9109477 (Version 3)
Quarter: 2014Q2

REPORT INFORMATION
  Report Type: Spontaneous
  Country: CN (occurrence: CN)
  Receive Date: 20130222
  Receipt Date: 20140512
  Transmission Date: 20141212
  Serious: Yes (Hospitalization)
  Sender: FDA-Public Use
  Company Number: PHHY2013CN017162

PATIENT
  Age: 49 Year
  Sex: Male

DRUGS (2)
  1. GLIVEC [Suspect]
     Indication: GASTROINTESTINAL STROMAL TUMOUR
     Dosage: 4 DF, QD
     Route: 048
     Dates: start: 20061105, end: 20130305
  2. ENTECAVIR [Concomitant]
     Indication: HEPATITIS B
     Dosage: 1 DF, QD
     Dates: start: 20060305, end: 20130305

REACTIONS (2)
  - Renal cancer [Recovered/Resolved]
  - Second primary malignancy [Recovered/Resolved]
